FAERS Safety Report 6567803-9 (Version None)
Quarter: 2010Q1

REPORT INFORMATION
  Report Type: 
  Country: None (occurrence: None)
  Receive Date: 20100203
  Receipt Date: 20100125
  Transmission Date: 20100710
  Serious: Yes (Hospitalization)
  Sender: FDA-Public Use
  Company Number: DE-JNJFOC-20100109268

PATIENT
  Age: 84 Year
  Sex: Male

DRUGS (5)
  1. RISPERDAL [Suspect]
     Indication: DEMENTIA ALZHEIMER'S TYPE
     Route: 048
     Dates: start: 20040101
  2. DIPIPERON [Interacting]
     Indication: DRUG USE FOR UNKNOWN INDICATION
     Route: 065
     Dates: start: 20050701, end: 20050801
  3. FENISTIL [Interacting]
     Indication: DRUG USE FOR UNKNOWN INDICATION
     Route: 065
     Dates: start: 20050701
  4. CIPRALEX [Concomitant]
     Route: 065
     Dates: start: 20031101, end: 20050801
  5. ALNA [Concomitant]
     Route: 065
     Dates: start: 20041001

REACTIONS (5)
  - CHEST PAIN [None]
  - DEEP VEIN THROMBOSIS [None]
  - DRUG INTERACTION [None]
  - OEDEMA [None]
  - RESTLESSNESS [None]
